FAERS Safety Report 9810099 (Version 2)
Quarter: 2015Q3

REPORT INFORMATION
  Report Type: Spontaneous
  Country: US (occurrence: US)
  Receive Date: 20140110
  Receipt Date: 20150928
  Transmission Date: 20151125
  Serious: Yes (Other)
  Sender: FDA-Public Use
  Company Number: US-SANOFI-AVENTIS-2013SA079665

PATIENT
  Age: 61 Year
  Sex: Female
  Weight: 99.79 kg

DRUGS (21)
  1. LIPITOR [Concomitant]
     Active Substance: ATORVASTATIN CALCIUM
  2. DARVOCET [Concomitant]
     Active Substance: ACETAMINOPHEN\PROPOXYPHENE HYDROCHLORIDE
     Indication: PAIN
     Dosage: 1-2 TABLETS
     Route: 048
  3. ZOLOFT [Concomitant]
     Active Substance: SERTRALINE HYDROCHLORIDE
  4. ATENOLOL. [Concomitant]
     Active Substance: ATENOLOL
  5. CIPROFLOXACIN. [Concomitant]
     Active Substance: CIPROFLOXACIN
  6. ADVIL [Concomitant]
     Active Substance: IBUPROFEN
  7. HYDROCHLOROTHIAZIDE. [Concomitant]
     Active Substance: HYDROCHLOROTHIAZIDE
     Route: 048
  8. LISINOPRIL. [Concomitant]
     Active Substance: LISINOPRIL
     Route: 048
  9. METHIMAZOLE. [Concomitant]
     Active Substance: METHIMAZOLE
     Dosage: 2 TABLETS DAILY (STRENGTH: 5 MG)
  10. NITROGLYCERINE [Concomitant]
     Active Substance: NITROGLYCERIN
  11. TYLENOL [Concomitant]
     Active Substance: ACETAMINOPHEN
  12. METOPROLOL [Concomitant]
     Active Substance: METOPROLOL
     Route: 048
  13. LOTENSIN [Concomitant]
     Active Substance: BENAZEPRIL HYDROCHLORIDE
  14. COUMADIN [Concomitant]
     Active Substance: WARFARIN SODIUM
  15. ASPIRIN. [Concomitant]
     Active Substance: ASPIRIN
  16. CLINDAMYCIN [Concomitant]
     Active Substance: CLINDAMYCIN\CLINDAMYCIN PHOSPHATE
     Route: 042
  17. VICODIN [Concomitant]
     Active Substance: ACETAMINOPHEN\HYDROCODONE BITARTRATE
     Dates: start: 20100506
  18. PREMPRO [Concomitant]
     Active Substance: ESTROGENS, CONJUGATED\MEDROXYPROGESTERONE ACETATE
  19. PLAVIX [Suspect]
     Active Substance: CLOPIDOGREL BISULFATE
     Indication: PRODUCT USED FOR UNKNOWN INDICATION
     Route: 065
     Dates: start: 1997, end: 2013
  20. NIFEDIPINE. [Concomitant]
     Active Substance: NIFEDIPINE
     Route: 048
  21. ALTACE [Concomitant]
     Active Substance: RAMIPRIL

REACTIONS (12)
  - Dizziness [Unknown]
  - Cerebrovascular accident [Recovered/Resolved]
  - Grip strength decreased [Unknown]
  - Gastrointestinal haemorrhage [Recovered/Resolved]
  - Coordination abnormal [Unknown]
  - Intra-abdominal haemorrhage [Recovered/Resolved]
  - Thrombotic thrombocytopenic purpura [Unknown]
  - Headache [Unknown]
  - Hemiparesis [Recovered/Resolved]
  - Vascular stent stenosis [Unknown]
  - Muscular weakness [Unknown]
  - Arteriosclerosis [Unknown]

NARRATIVE: CASE EVENT DATE: 1999
